FAERS Safety Report 8234618-5 (Version None)
Quarter: 2012Q1

REPORT INFORMATION
  Report Type: 
  Country: None (occurrence: None)
  Receive Date: 20120326
  Receipt Date: 20120319
  Transmission Date: 20120608
  Serious: Yes (Disabling)
  Sender: FDA-Public Use
  Company Number: FR-ABBOTT-12P-056-0916493-00

PATIENT
  Sex: Male

DRUGS (4)
  1. KALETRA [Suspect]
     Indication: HIV INFECTION
     Dosage: 250MG/50MG
     Route: 048
     Dates: start: 20070705
  2. VIREAD [Suspect]
     Indication: HIV INFECTION
     Route: 048
     Dates: start: 20070705
  3. CRESTOR [Concomitant]
     Indication: DYSLIPIDAEMIA
  4. ABACAVIR SULFATE/LAMIVUDINE [Suspect]
     Indication: HIV INFECTION
     Route: 048
     Dates: start: 20070705

REACTIONS (3)
  - CEREBROVASCULAR ACCIDENT [None]
  - HEMIPLEGIA [None]
  - APHASIA [None]
